FAERS Safety Report 8366342-2 (Version None)
Quarter: 2012Q2

REPORT INFORMATION
  Report Type: 
  Country: None (occurrence: None)
  Receive Date: 20120517
  Receipt Date: 20120515
  Transmission Date: 20120825
  Serious: Yes (Disabling)
  Sender: FDA-Public Use
  Company Number: PHHY2012NL041705

PATIENT
  Sex: Female

DRUGS (2)
  1. ZOMETA [Suspect]
     Dosage: 4 MG/100ML, 1X PER 42 DAYS
     Dates: start: 20120515
  2. ZOMETA [Suspect]
     Dosage: 4 MG/100ML, 1X PER 42 DAYS
     Dates: start: 20120412

REACTIONS (2)
  - DIPLOPIA [None]
  - METASTASES TO EYE [None]
